FAERS Safety Report 5119443-6 (Version None)
Quarter: 2006Q3

REPORT INFORMATION
  Report Type: 
  Country: None (occurrence: None)
  Receive Date: 20060929
  Receipt Date: 20060920
  Transmission Date: 20061208
  Serious: Yes (Other)
  Sender: FDA-Public Use
  Company Number: 2006114048

PATIENT
  Sex: Female

DRUGS (4)
  1. GEODON [Suspect]
     Indication: BIPOLAR DISORDER
     Dosage: 80 MG (40 MG, 2 IN 1 D)
  2. GEODON [Suspect]
     Indication: PANIC ATTACK
     Dosage: 80 MG (40 MG, 2 IN 1 D)
  3. LEXAPRO [Concomitant]
  4. LAMICTAL [Concomitant]

REACTIONS (6)
  - CONFUSIONAL STATE [None]
  - DRUG WITHDRAWAL SYNDROME [None]
  - DYSKINESIA [None]
  - MUSCLE TWITCHING [None]
  - MUSCULOSKELETAL STIFFNESS [None]
  - SEDATION [None]
